FAERS Safety Report 6173809-4 (Version None)
Quarter: 2009Q2

REPORT INFORMATION
  Report Type: 
  Country: None (occurrence: None)
  Receive Date: 20090430
  Receipt Date: 20090427
  Transmission Date: 20091009
  Serious: Yes (Disabling)
  Sender: FDA-Public Use
  Company Number: BR-BAYER-200915687LA

PATIENT
  Age: 64 Year
  Sex: Male
  Weight: 90 kg

DRUGS (2)
  1. LEVITRA [Suspect]
     Indication: ERECTILE DYSFUNCTION
     Dosage: UNIT DOSE: 20 MG
     Route: 048
     Dates: start: 20090424
  2. UNKNOWN DRUG [Concomitant]
     Indication: RHINITIS
     Dosage: 10 DROPS
     Route: 048
     Dates: start: 20070101

REACTIONS (8)
  - ABDOMINAL PAIN [None]
  - DIARRHOEA [None]
  - DISABILITY [None]
  - DIZZINESS [None]
  - HEADACHE [None]
  - PRURITUS [None]
  - RHINITIS [None]
  - VISION BLURRED [None]
